APPROVED DRUG PRODUCT: DIMENHYDRINATE
Active Ingredient: DIMENHYDRINATE
Strength: 50MG/ML
Dosage Form/Route: INJECTABLE;INJECTION
Application: A080615 | Product #001
Applicant: WATSON LABORATORIES INC AN INDIRECT WHOLLY OWNED SUB OF TEVA PHARMACEUTICALS USA INC
Approved: Approved Prior to Jan 1, 1982 | RLD: Yes | RS: No | Type: DISCN